FAERS Safety Report 8262102-1 (Version None)
Quarter: 2012Q2

REPORT INFORMATION
  Report Type: 
  Country: None (occurrence: None)
  Receive Date: 20120405
  Receipt Date: 20120329
  Transmission Date: 20120825
  Serious: Yes (Hospitalization)
  Sender: FDA-Public Use
  Company Number: PHHO2012US004058

PATIENT
  Sex: Female

DRUGS (8)
  1. MULTI-VITAMIN [Concomitant]
  2. CYTARABINE [Concomitant]
     Indication: ACUTE MYELOID LEUKAEMIA
  3. ULTRAM [Concomitant]
  4. IDARUBICIN HCL [Concomitant]
     Indication: ACUTE MYELOID LEUKAEMIA
  5. ARIXTRA [Concomitant]
  6. GLEEVEC [Suspect]
     Indication: ACUTE MYELOID LEUKAEMIA
     Dosage: 600 MG, QD
     Route: 048
     Dates: start: 20111024, end: 20120308
  7. SYNTHROID [Concomitant]
  8. CALCIUM CARBONATE [Concomitant]

REACTIONS (7)
  - PLEURAL EFFUSION [None]
  - ATELECTASIS [None]
  - HYPOTENSION [None]
  - PLEURITIC PAIN [None]
  - URTICARIA [None]
  - PULMONARY EMBOLISM [None]
  - PERICARDIAL EFFUSION [None]
